APPROVED DRUG PRODUCT: NYSTATIN
Active Ingredient: NYSTATIN
Strength: 100,000 UNITS/GM
Dosage Form/Route: POWDER;TOPICAL
Application: A208581 | Product #001 | TE Code: AT
Applicant: ZYDUS PHARMACEUTICALS USA INC
Approved: Jun 8, 2017 | RLD: No | RS: No | Type: RX